FAERS Safety Report 8251535-5 (Version None)
Quarter: 2012Q2

REPORT INFORMATION
  Report Type: 
  Country: None (occurrence: None)
  Receive Date: 20120402
  Receipt Date: 20120321
  Transmission Date: 20120825
  Serious: Yes (Death, Life-Threatening, Hospitalization)
  Sender: FDA-Public Use
  Company Number: BR-CELGENEUS-020-C5013-12022070

PATIENT
  Sex: Male
  Weight: 56 kg

DRUGS (2)
  1. LENALIDOMIDE [Suspect]
     Dosage: 2.5 MILLIGRAM
     Route: 048
     Dates: start: 20111205
  2. LENALIDOMIDE [Suspect]
     Dosage: 2.5 MILLIGRAM
     Route: 048
     Dates: start: 20120123, end: 20120128

REACTIONS (2)
  - PNEUMONIA [None]
  - PERICARDIAL EFFUSION [None]
